FAERS Safety Report 20796886 (Version 2)
Quarter: 2022Q3

REPORT INFORMATION
  Report Type: Spontaneous
  Country: US (occurrence: US)
  Receive Date: 20220506
  Receipt Date: 20220805
  Transmission Date: 20221026
  Serious: No
  Sender: FDA-Public Use
  Company Number: US-PPDUS-2022ALB000069

PATIENT
  Age: 8 Year
  Sex: Male
  Weight: 22.246 kg

DRUGS (7)
  1. BYLVAY [Suspect]
     Active Substance: ODEVIXIBAT
     Indication: Progressive familial intrahepatic cholestasis
     Route: 048
  2. URSODIOL [Concomitant]
     Active Substance: URSODIOL
  3. NALTREXONE [Concomitant]
     Active Substance: NALTREXONE
  4. ATARAX [Concomitant]
     Active Substance: HYDROXYZINE HYDROCHLORIDE
  5. SULFASALAZINE [Concomitant]
     Active Substance: SULFASALAZINE
  6. PREDNISONE [Concomitant]
     Active Substance: PREDNISONE
  7. VITAMINS [Concomitant]
     Active Substance: VITAMINS
     Indication: Vitamin supplementation

REACTIONS (2)
  - Laboratory test abnormal [Unknown]
  - Drug ineffective [Unknown]
